FAERS Safety Report 12106508 (Version 2)
Quarter: 2016Q2

REPORT INFORMATION
  Report Type: Spontaneous
  Country: FR (occurrence: FR)
  Receive Date: 20160223
  Receipt Date: 20160622
  Transmission Date: 20160815
  Serious: Yes (Other)
  Sender: FDA-Public Use
  Company Number: FR-MYLANLABS-2016M1006875

PATIENT

DRUGS (9)
  1. FENTANYL MYLAN [Suspect]
     Active Substance: FENTANYL
     Indication: PAIN
     Dosage: UNK
     Route: 062
     Dates: start: 20160208, end: 20160208
  2. LEXOMIL [Concomitant]
     Active Substance: BROMAZEPAM
     Indication: ANXIETY
     Dosage: 3 DF, QD
     Route: 048
     Dates: start: 20060126
  3. CITALOPRAM [Concomitant]
     Active Substance: CITALOPRAM HYDROBROMIDE
     Indication: DEPRESSION
     Dosage: 3 DF, QD
     Route: 048
     Dates: start: 20061020
  4. IBUPROFENE [Concomitant]
     Active Substance: IBUPROFEN
     Indication: MIGRAINE
     Dosage: 3 DF, QD
     Route: 048
     Dates: start: 20140627
  5. DUROGESIC [Concomitant]
     Active Substance: FENTANYL
     Dosage: UNK
     Route: 062
     Dates: start: 20160209
  6. FENTANYL MYLAN [Suspect]
     Active Substance: FENTANYL
     Dosage: UNK
     Route: 062
     Dates: start: 20160208, end: 20160208
  7. DIAZEPAM. [Concomitant]
     Active Substance: DIAZEPAM
     Indication: ANXIETY
     Dosage: 3 DF, QD
     Route: 048
     Dates: start: 20060626
  8. PARIET [Concomitant]
     Active Substance: RABEPRAZOLE SODIUM
     Indication: GASTROOESOPHAGEAL REFLUX DISEASE
     Dosage: 1 DF, QD
     Route: 048
     Dates: start: 20050224
  9. DUROGESIC [Concomitant]
     Active Substance: FENTANYL
     Indication: PAIN
     Dosage: 1 DF, Q3D
     Route: 062
     Dates: start: 20071026, end: 201602

REACTIONS (3)
  - Pain [Recovered/Resolved]
  - Product substitution issue [Unknown]
  - Drug ineffective [Unknown]

NARRATIVE: CASE EVENT DATE: 20160208
